FAERS Safety Report 19358337 (Version 2)
Quarter: 2021Q4

REPORT INFORMATION
  Report Type: Report from Study
  Country: KR (occurrence: KR)
  Receive Date: 20210531
  Receipt Date: 20211102
  Transmission Date: 20220303
  Serious: Yes (Other)
  Sender: FDA-Public Use
  Company Number: KR-KYOWAKIRIN-2021AKK009099

PATIENT
  Age: 55 Year
  Sex: Female

DRUGS (3)
  1. FILGRASTIM [Suspect]
     Active Substance: FILGRASTIM
     Indication: Product used for unknown indication
     Dosage: UNK
     Route: 065
     Dates: start: 20160310
  2. ERIBULIN [Concomitant]
     Active Substance: ERIBULIN
     Indication: Product used for unknown indication
     Dosage: 2 UNK
     Dates: start: 20160303
  3. METOCLOPRAMIDE [Concomitant]
     Active Substance: METOCLOPRAMIDE
     Indication: Product used for unknown indication
     Dosage: 1 UNK
     Dates: start: 20160303

REACTIONS (1)
  - Neutropenia [Recovered/Resolved]

NARRATIVE: CASE EVENT DATE: 20160310
